FAERS Safety Report 9902289 (Version 1)
Quarter: 2014Q1

REPORT INFORMATION
  Report Type: Spontaneous
  Country: US (occurrence: US)
  Receive Date: 20140217
  Receipt Date: 20140217
  Transmission Date: 20141002
  Serious: No
  Sender: FDA-Public Use
  Company Number: US-GILEAD-2011-0044302

PATIENT
  Sex: Male
  Weight: 92.63 kg

DRUGS (1)
  1. LETAIRIS [Suspect]
     Indication: PRODUCT USED FOR UNKNOWN INDICATION
     Dosage: 5 MG, QD
     Route: 048
     Dates: start: 20110729, end: 20110909

REACTIONS (2)
  - Oedema peripheral [Recovered/Resolved]
  - Fluid retention [Recovered/Resolved]
